FAERS Safety Report 16276812 (Version 3)
Quarter: 2019Q2

REPORT INFORMATION
  Report Type: Report from Study
  Country: CA (occurrence: CA)
  Receive Date: 20190506
  Receipt Date: 20190514
  Transmission Date: 20190711
  Serious: Yes (Other)
  Sender: FDA-Public Use
  Company Number: CA-JNJFOC-20190216034

PATIENT
  Age: 18 Year
  Sex: Male
  Weight: 69 kg

DRUGS (4)
  1. STELARA [Suspect]
     Active Substance: USTEKINUMAB
     Indication: CROHN^S DISEASE
     Route: 058
     Dates: start: 20161122
  2. VANCOMYCIN [Concomitant]
     Active Substance: VANCOMYCIN
     Indication: PRODUCT USED FOR UNKNOWN INDICATION
     Route: 065
  3. STELARA [Suspect]
     Active Substance: USTEKINUMAB
     Indication: CROHN^S DISEASE
     Route: 058
  4. CORTISONE [Suspect]
     Active Substance: CORTISONE\HYDROCORTISONE
     Indication: PRODUCT USED FOR UNKNOWN INDICATION
     Route: 065
     Dates: start: 201902

REACTIONS (10)
  - Crohn^s disease [Not Recovered/Not Resolved]
  - Irritability [Not Recovered/Not Resolved]
  - Clostridium test positive [Unknown]
  - Hyperhidrosis [Not Recovered/Not Resolved]
  - Drug ineffective [Unknown]
  - Fistula [Unknown]
  - Secretion discharge [Not Recovered/Not Resolved]
  - Anal abscess [Not Recovered/Not Resolved]
  - Seborrhoea [Not Recovered/Not Resolved]
  - Acne [Not Recovered/Not Resolved]

NARRATIVE: CASE EVENT DATE: 201902
